FAERS Safety Report 4582570-6 (Version None)
Quarter: 2005Q1

REPORT INFORMATION
  Report Type: 
  Country: None (occurrence: None)
  Receive Date: 20050215
  Receipt Date: 20050207
  Transmission Date: 20050727
  Serious: Yes (Disabling)
  Sender: FDA-Public Use
  Company Number: 200511141GDDC

PATIENT
  Age: 66 Year
  Sex: Female
  Weight: 67.7 kg

DRUGS (3)
  1. METRONIDAZOLE [Suspect]
     Indication: INFECTION
     Route: 048
     Dates: start: 20041001, end: 20041001
  2. ATORVASTATIN [Suspect]
     Indication: BLOOD CHOLESTEROL INCREASED
     Route: 048
     Dates: start: 20020601, end: 20041101
  3. TELMISARTAN [Suspect]
     Indication: HYPERTENSION
     Route: 048
     Dates: start: 20041101, end: 20041201

REACTIONS (1)
  - ALANINE AMINOTRANSFERASE INCREASED [None]
